FAERS Safety Report 25553818 (Version 1)
Quarter: 2025Q3

REPORT INFORMATION
  Report Type: Spontaneous
  Country: US (occurrence: US)
  Receive Date: 20250715
  Receipt Date: 20250715
  Transmission Date: 20251020
  Serious: Yes (Other)
  Sender: MACLEODS
  Company Number: US-MLMSERVICE-20250627-PI558619-00129-1

PATIENT

DRUGS (1)
  1. DOXYCYCLINE [Suspect]
     Active Substance: DOXYCYCLINE
     Indication: Lyme disease
     Route: 048

REACTIONS (2)
  - Dermatomyositis [Recovering/Resolving]
  - Condition aggravated [Recovering/Resolving]
